FAERS Safety Report 13528877 (Version 2)
Quarter: 2017Q2

REPORT INFORMATION
  Report Type: Spontaneous
  Country: US (occurrence: US)
  Receive Date: 20170509
  Receipt Date: 20170526
  Transmission Date: 20170830
  Serious: Yes (Hospitalization, Other)
  Sender: FDA-Public Use
  Company Number: US-ALLERGAN-1715079US

PATIENT
  Age: 79 Year
  Sex: Male

DRUGS (2)
  1. METFORMIN [Concomitant]
     Active Substance: METFORMIN HYDROCHLORIDE
     Indication: DIABETES MELLITUS
     Dosage: UNK
     Route: 065
  2. NAMENDA XR [Suspect]
     Active Substance: MEMANTINE HYDROCHLORIDE
     Indication: DEMENTIA
     Dosage: 28 MG, QD
     Route: 048
     Dates: start: 2015, end: 201703

REACTIONS (9)
  - Dementia [Unknown]
  - Sleep terror [Unknown]
  - Vomiting [Unknown]
  - Drug dose omission [Unknown]
  - Brain injury [Unknown]
  - Concussion [Unknown]
  - Fall [Unknown]
  - Head injury [Unknown]
  - Seizure [Unknown]

NARRATIVE: CASE EVENT DATE: 201703
